FAERS Safety Report 13928811 (Version 2)
Quarter: 2018Q3

REPORT INFORMATION
  Report Type: Spontaneous
  Country: US (occurrence: US)
  Receive Date: 20170901
  Receipt Date: 20180829
  Transmission Date: 20181010
  Serious: No
  Sender: FDA-Public Use
  Company Number: US-PFIZER INC-2017275268

PATIENT
  Age: 72 Year
  Sex: Female
  Weight: 60 kg

DRUGS (13)
  1. TAXOTERE [Suspect]
     Active Substance: DOCETAXEL
     Indication: BREAST CANCER FEMALE
     Dosage: 125 MG, CYCLIC (EVERY THREE WEEKS, 04 CYCLES)
     Dates: start: 20140818
  2. ESTRACE [Concomitant]
     Active Substance: ESTRADIOL
     Dosage: UNK
     Dates: start: 20070101
  3. PARAPLATIN [Concomitant]
     Active Substance: CARBOPLATIN
     Indication: CHEMOTHERAPY
     Dosage: 4 CYCLES
  4. PERJETA [Concomitant]
     Active Substance: PERTUZUMAB
     Indication: CHEMOTHERAPY
     Dosage: 4 CYCLES
  5. NEXIUM [Concomitant]
     Active Substance: ESOMEPRAZOLE MAGNESIUM
     Dosage: UNK
     Dates: start: 20070101
  6. TAXOTERE [Suspect]
     Active Substance: DOCETAXEL
     Dosage: 131 MG, CYCLIC (EVERY THREE WEEKS, 04 CYCLES)
     Dates: end: 20141020
  7. DOCETAXEL. [Suspect]
     Active Substance: DOCETAXEL
     Indication: BREAST CANCER FEMALE
     Dosage: 125 MG, CYCLIC (EVERY 3 WEEKS, 04 CYCLES)
     Dates: start: 20140818
  8. TAXOTERE [Suspect]
     Active Substance: DOCETAXEL
     Dosage: 129 MG, CYCLIC (EVERY THREE WEEKS, 04 CYCLES)
  9. HERCEPTIN [Concomitant]
     Active Substance: TRASTUZUMAB
     Indication: CHEMOTHERAPY
     Dosage: 4 CYCLES
  10. PRAVASTATIN. [Concomitant]
     Active Substance: PRAVASTATIN
     Dosage: UNK
  11. DOCETAXEL. [Suspect]
     Active Substance: DOCETAXEL
     Dosage: 129 MG, CYCLIC (EVERY 3 WEEKS, 04 CYCLES)
  12. DOCETAXEL. [Suspect]
     Active Substance: DOCETAXEL
     Dosage: 131 MG, CYCLIC (EVERY 3 WEEKS, 04 CYCLES)
     Dates: end: 20141020
  13. NEULASTA [Concomitant]
     Active Substance: PEGFILGRASTIM
     Dosage: UNK

REACTIONS (5)
  - Hair disorder [Not Recovered/Not Resolved]
  - Alopecia [Not Recovered/Not Resolved]
  - Hair colour changes [Not Recovered/Not Resolved]
  - Madarosis [Not Recovered/Not Resolved]
  - Hair texture abnormal [Not Recovered/Not Resolved]

NARRATIVE: CASE EVENT DATE: 20150420
